FAERS Safety Report 10888500 (Version 1)
Quarter: 2015Q1

REPORT INFORMATION
  Report Type: Spontaneous
  Country: US (occurrence: US)
  Receive Date: 20150305
  Receipt Date: 20150305
  Transmission Date: 20150721
  Serious: Yes (Other)
  Sender: FDA-Public Use
  Company Number: US-ASTRAZENECA-2015SE19248

PATIENT
  Sex: Female

DRUGS (2)
  1. IMURAN [Concomitant]
     Active Substance: AZATHIOPRINE
  2. BUDESONIDE. [Suspect]
     Active Substance: BUDESONIDE
     Indication: HEPATIC ENZYME INCREASED
     Route: 048

REACTIONS (7)
  - Hepatic enzyme increased [Unknown]
  - Emotional disorder [Recovering/Resolving]
  - Swelling face [Not Recovered/Not Resolved]
  - Autoimmune hepatitis [Unknown]
  - Alanine aminotransferase increased [Unknown]
  - Aspartate aminotransferase increased [Unknown]
  - Abdominal discomfort [Recovering/Resolving]
